FAERS Safety Report 6108105-4 (Version None)
Quarter: 2009Q1

REPORT INFORMATION
  Report Type: 
  Country: None (occurrence: None)
  Receive Date: 20090305
  Receipt Date: 20090305
  Transmission Date: 20090719
  Serious: Yes (Life-Threatening)
  Sender: FDA-Public Use
  Company Number: None

PATIENT
  Sex: Male
  Weight: 64 kg

DRUGS (1)
  1. PHENYTOIN [Suspect]
     Dosage: 300MG PO BID
     Dates: start: 20080201

REACTIONS (2)
  - RASH GENERALISED [None]
  - SKIN EXFOLIATION [None]
